FAERS Safety Report 22250011 (Version 1)
Quarter: 2023Q2

REPORT INFORMATION
  Report Type: Spontaneous
  Country: CA (occurrence: CA)
  Receive Date: 20230425
  Receipt Date: 20230425
  Transmission Date: 20230722
  Serious: Yes (Death, Other)
  Sender: FDA-Public Use
  Company Number: CA-PFIZER INC-0007233812PHAMED

PATIENT
  Age: 61 Year
  Sex: Male

DRUGS (4)
  1. TRIAZOLAM [Interacting]
     Active Substance: TRIAZOLAM
     Dosage: UNK
     Route: 048
  2. DIAZEPAM [Interacting]
     Active Substance: DIAZEPAM
     Dosage: UNK
  3. NORDAZEPAM [Interacting]
     Active Substance: NORDAZEPAM
     Dosage: UNK
  4. CHLORDIAZEPOXIDE [Interacting]
     Active Substance: CHLORDIAZEPOXIDE
     Dosage: UNK

REACTIONS (2)
  - Drug interaction [Fatal]
  - Drug abuse [Fatal]
